FAERS Safety Report 5131300-8 (Version None)
Quarter: 2006Q4

REPORT INFORMATION
  Report Type: 
  Country: None (occurrence: None)
  Receive Date: 20061020
  Receipt Date: 20061009
  Transmission Date: 20070319
  Serious: Yes (Other)
  Sender: FDA-Public Use
  Company Number: FR-JNJFOC-20061002204

PATIENT
  Age: 49 Year
  Sex: Female

DRUGS (3)
  1. REMICADE [Suspect]
     Indication: ANKYLOSING SPONDYLITIS
     Route: 042
  2. NIFLURIL [Concomitant]
     Route: 065
  3. PROPOFOL [Concomitant]
     Route: 065

REACTIONS (3)
  - DERMATITIS BULLOUS [None]
  - OEDEMA PERIPHERAL [None]
  - PRURITUS GENERALISED [None]
